FAERS Safety Report 4523528-2 (Version None)
Quarter: 2004Q4

REPORT INFORMATION
  Report Type: 
  Country: None (occurrence: None)
  Receive Date: 20041208
  Receipt Date: 20041124
  Transmission Date: 20050328
  Serious: Yes (Hospitalization)
  Sender: FDA-Public Use
  Company Number: MEDI-0002469

PATIENT
  Age: 20 Day
  Sex: Female
  Weight: 2.268 kg

DRUGS (1)
  1. SYNAGIS [Suspect]
     Indication: ANTIVIRAL PROPHYLAXIS
     Dosage: 33 MG, 1 IN 30 D, INTRAMUSCULAR
     Route: 030
     Dates: start: 20041119, end: 20041119

REACTIONS (10)
  - DIARRHOEA NEONATAL [None]
  - IATROGENIC INJURY [None]
  - LIVEDO RETICULARIS [None]
  - NECROTISING ENTEROCOLITIS NEONATAL [None]
  - NEONATAL RESPIRATORY ARREST [None]
  - NEONATAL RESPIRATORY DISTRESS SYNDROME [None]
  - PNEUMOCEPHALUS [None]
  - RESPIRATORY SYNCYTIAL VIRUS INFECTION [None]
  - SEPSIS NEONATAL [None]
  - VOMITING NEONATAL [None]
